FAERS Safety Report 9533239 (Version 1)
Quarter: 2013Q3

REPORT INFORMATION
  Report Type: Spontaneous
  Country: US (occurrence: US)
  Receive Date: 20130918
  Receipt Date: 20130918
  Transmission Date: 20140515
  Serious: Yes (Other)
  Sender: FDA-Public Use
  Company Number: US-FRI-1000048699

PATIENT
  Sex: Female
  Weight: 96.6 kg

DRUGS (1)
  1. LEXAPRO [Suspect]
     Indication: BIPOLAR DISORDER

REACTIONS (2)
  - Schizophrenia [Unknown]
  - Off label use [Recovered/Resolved]
